FAERS Safety Report 7325568-7 (Version None)
Quarter: 2011Q1

REPORT INFORMATION
  Report Type: 
  Country: None (occurrence: None)
  Receive Date: 20110302
  Receipt Date: 20110223
  Transmission Date: 20110831
  Serious: Yes (Other)
  Sender: FDA-Public Use
  Company Number: IT-CUBIST-2011S1000114

PATIENT
  Age: 70 Year
  Sex: Female
  Weight: 99 kg

DRUGS (2)
  1. HMG COA REDUCTASE INHIBITORS [Concomitant]
     Route: 065
  2. CUBICIN [Suspect]
     Indication: SEPSIS
     Route: 042

REACTIONS (2)
  - OVERDOSE [None]
  - RHABDOMYOLYSIS [None]
